FAERS Safety Report 8902914 (Version 2)
Quarter: 2012Q4

REPORT INFORMATION
  Report Type: Report from Study
  Country: US (occurrence: US)
  Receive Date: 20121112
  Receipt Date: 20121119
  Transmission Date: 20130627
  Serious: Yes (Hospitalization)
  Sender: FDA-Public Use
  Company Number: US-UCBSA-070414

PATIENT
  Age: 21 Year
  Sex: Female
  Weight: 71.21 kg

DRUGS (15)
  1. CIMZIA [Suspect]
     Indication: CROHN^S DISEASE
     Route: 058
     Dates: start: 20101105, end: 20110217
  2. CIMZIA [Suspect]
     Indication: CROHN^S DISEASE
     Route: 058
     Dates: start: 20110303, end: 20120711
  3. CIMZIA [Suspect]
     Indication: CROHN^S DISEASE
     Route: 058
     Dates: start: 20120731
  4. CANASA [Concomitant]
     Dosage: 1 DAILY
     Dates: start: 20120705, end: 20120905
  5. CANASA [Concomitant]
     Dates: start: 20120906
  6. DELTASONE [Concomitant]
     Indication: CROHN^S DISEASE
     Dates: start: 201003, end: 201206
  7. DELTASONE [Concomitant]
     Indication: CROHN^S DISEASE
     Dates: start: 20120705
  8. DELTASONE [Concomitant]
     Indication: CROHN^S DISEASE
     Dosage: TAPERED DOWN TO 5MG
     Dates: start: 2012, end: 2012
  9. DELTASONE [Concomitant]
     Indication: CROHN^S DISEASE
     Dosage: 40MG DAILY; 20MG TABLETS (2 TABS ONCE DAILY)
     Route: 048
     Dates: start: 2012
  10. AZATHIOPRINE [Concomitant]
     Dosage: 200MG DAILY
     Dates: start: 20111026
  11. VITAMIN D [Concomitant]
  12. FLORAJEN 3 [Concomitant]
  13. MIRENA [Concomitant]
     Dosage: STRENGTH: 20MCG/24HR ; 1 EACH
     Route: 015
  14. PREDNISONE [Concomitant]
     Dates: start: 201003, end: 201206
  15. PREDNISONE [Concomitant]
     Dates: start: 20120705, end: 20120802

REACTIONS (1)
  - Pneumonia [Recovered/Resolved]
